FAERS Safety Report 13553804 (Version 1)
Quarter: 2017Q2

REPORT INFORMATION
  Report Type: Spontaneous
  Country: US (occurrence: US)
  Receive Date: 20170517
  Receipt Date: 20170517
  Transmission Date: 20170830
  Serious: No
  Sender: FDA-Public Use
  Company Number: US-009507513-1705USA002292

PATIENT
  Age: 31 Year
  Sex: Female
  Weight: 167.8 kg

DRUGS (2)
  1. NEXPLANON [Suspect]
     Active Substance: ETONOGESTREL
     Dosage: 1 IMPLANT, UNK
     Route: 059
     Dates: start: 20141119, end: 20170502
  2. NEXPLANON [Suspect]
     Active Substance: ETONOGESTREL
     Dosage: 1 IMPLANT, UNK
     Route: 059
     Dates: start: 20170502

REACTIONS (4)
  - Device breakage [Recovered/Resolved]
  - Complication of device removal [Not Recovered/Not Resolved]
  - No adverse event [Unknown]
  - Overdose [Unknown]

NARRATIVE: CASE EVENT DATE: 20170502
